FAERS Safety Report 7877144-5 (Version None)
Quarter: 2011Q4

REPORT INFORMATION
  Report Type: 
  Country: None (occurrence: None)
  Receive Date: 20111031
  Receipt Date: 20111024
  Transmission Date: 20120403
  Serious: Yes (Hospitalization)
  Sender: FDA-Public Use
  Company Number: US-AMGEN-USASP2011049514

PATIENT
  Age: 64 Year
  Sex: Female

DRUGS (30)
  1. VITAMIN D [Concomitant]
     Dosage: 400 IU, QD
     Route: 048
  2. RESTASIS [Concomitant]
     Route: 047
  3. PLAQUENIL [Concomitant]
     Dosage: 200 MG, QD
     Route: 048
  4. DYAZIDE [Concomitant]
     Route: 048
  5. FERROUS SULFATE TAB [Concomitant]
     Dosage: 325 MG, BID
     Route: 048
  6. TEMOVATE [Concomitant]
     Route: 061
  7. AMITIZA [Concomitant]
     Dosage: 8 MUG, BID
     Route: 048
  8. DOLOPHINE HCL [Concomitant]
     Dosage: 10 MG, TID
     Route: 048
  9. MIRALAX [Concomitant]
     Dosage: 17 G, QD
     Route: 048
  10. LUNESTA [Concomitant]
     Dosage: 2 MG, QD
     Route: 048
  11. MAGNESIUM OXIDE [Concomitant]
     Dosage: 250 MG, UNK
     Route: 048
  12. ZEGERID                            /00661201/ [Concomitant]
     Route: 048
  13. THERAGRAN                          /00554301/ [Concomitant]
     Route: 048
  14. EFFEXOR XR [Concomitant]
     Dosage: 75 MG, QD
     Route: 048
  15. CALCIUM [Concomitant]
     Dosage: UNK UNK, BID
     Route: 048
  16. METHADONE HCL [Concomitant]
     Dosage: 10 MG, UNK
  17. PROLIA [Suspect]
     Indication: OSTEOPOROSIS POSTMENOPAUSAL
     Dosage: 60 MG, Q6MO
     Route: 058
     Dates: start: 20100902
  18. LOVAZA [Concomitant]
     Route: 048
  19. THERAGRAN-M                        /06012901/ [Concomitant]
     Route: 048
  20. COLACE [Concomitant]
     Dosage: 100 MG, BID
     Route: 048
  21. FLAXSEED OIL [Concomitant]
     Dosage: 1000 MG, UNK
     Route: 048
  22. KEPPRA [Concomitant]
     Dosage: 750 MG, UNK
     Route: 048
  23. LOVENOX [Concomitant]
     Indication: THROMBOSIS PROPHYLAXIS
     Dosage: 40 MG, UNK
     Route: 058
  24. DULCOLAX [Concomitant]
     Dosage: 5 MG, UNK
     Route: 048
  25. CALCIUM WITH VITAMIN D             /00944201/ [Concomitant]
     Route: 048
  26. NORCO [Concomitant]
     Indication: PAIN
     Dosage: UNK UNK, Q4H
     Route: 048
  27. MOBIC [Concomitant]
     Dosage: 15 MG, QD
     Route: 048
  28. LOPROX [Concomitant]
     Route: 061
  29. VITAMIN C                          /00008001/ [Concomitant]
     Dosage: 500 MG, QD
     Route: 048
  30. NEXIUM [Concomitant]
     Dosage: 40 MG, BID

REACTIONS (11)
  - ANAEMIA [None]
  - WALKING AID USER [None]
  - FALL [None]
  - IRON DEFICIENCY [None]
  - PAIN IN EXTREMITY [None]
  - FEMORAL NECK FRACTURE [None]
  - URINARY INCONTINENCE [None]
  - ASTHENIA [None]
  - BACK PAIN [None]
  - SCIATICA [None]
  - PAIN [None]
